FAERS Safety Report 20115631 (Version 2)
Quarter: 2022Q1

REPORT INFORMATION
  Report Type: Spontaneous
  Country: CN (occurrence: CN)
  Receive Date: 20211126
  Receipt Date: 20220214
  Transmission Date: 20220423
  Serious: Yes (Other)
  Sender: FDA-Public Use
  Company Number: CN-SA-2015SA027028

PATIENT
  Age: 66 Year
  Sex: Male

DRUGS (16)
  1. CYCLOPHOSPHAMIDE [Suspect]
     Active Substance: CYCLOPHOSPHAMIDE
     Indication: Angiosarcoma metastatic
     Dosage: 750 MG/M2,Q3W
     Route: 065
     Dates: start: 200809
  2. CYCLOPHOSPHAMIDE [Suspect]
     Active Substance: CYCLOPHOSPHAMIDE
     Indication: Metastases to lung
  3. VINCRISTINE SULFATE [Suspect]
     Active Substance: VINCRISTINE SULFATE
     Indication: Angiosarcoma metastatic
     Dosage: CYCLICAL;1.4 MG/M2 ON DAY 1
     Route: 065
     Dates: start: 200809
  4. VINCRISTINE SULFATE [Suspect]
     Active Substance: VINCRISTINE SULFATE
     Indication: Metastases to lung
  5. DOCETAXEL [Suspect]
     Active Substance: DOCETAXEL
     Indication: Angiosarcoma metastatic
     Dosage: 75 MG/M2,Q3W
     Route: 065
     Dates: start: 200904
  6. DOCETAXEL [Suspect]
     Active Substance: DOCETAXEL
     Indication: Metastases to lung
     Dosage: 60 MG/M2, CYC (ON DAY 1)
     Route: 065
  7. DOCETAXEL [Suspect]
     Active Substance: DOCETAXEL
     Indication: Metastases to bone
  8. DOCETAXEL [Suspect]
     Active Substance: DOCETAXEL
     Indication: Metastases to central nervous system
  9. CISPLATIN [Suspect]
     Active Substance: CISPLATIN
     Indication: Angiosarcoma metastatic
     Dosage: CYCLICAL; 75 MG/M2 ON DAY 1, REPEATED EVERY THREE WEEKS
     Route: 065
     Dates: start: 200904
  10. CISPLATIN [Suspect]
     Active Substance: CISPLATIN
     Indication: Metastases to lung
     Dosage: 30 MG/M2, EVERY 3 WEEK
  11. CISPLATIN [Suspect]
     Active Substance: CISPLATIN
     Indication: Metastases to bone
  12. CISPLATIN [Suspect]
     Active Substance: CISPLATIN
     Indication: Metastases to central nervous system
  13. EPIRUBICIN [Suspect]
     Active Substance: EPIRUBICIN
     Indication: Angiosarcoma metastatic
     Dosage: 60 MG/M2, CYCLIC (ON DAY 1)
     Route: 065
     Dates: start: 200809
  14. EPIRUBICIN [Suspect]
     Active Substance: EPIRUBICIN
     Indication: Metastases to lung
  15. DACARBAZINE [Suspect]
     Active Substance: DACARBAZINE
     Indication: Angiosarcoma metastatic
     Dosage: CYCLICAL; 250 MG/M2 FROM DAY 1-5
     Route: 065
     Dates: start: 200809
  16. DACARBAZINE [Suspect]
     Active Substance: DACARBAZINE
     Indication: Metastases to lung

REACTIONS (4)
  - Myelosuppression [Unknown]
  - Leukopenia [Unknown]
  - Hepatic function abnormal [Unknown]
  - Nausea [Unknown]

NARRATIVE: CASE EVENT DATE: 20080101
